FAERS Safety Report 8250542-6 (Version None)
Quarter: 2012Q2

REPORT INFORMATION
  Report Type: 
  Country: None (occurrence: None)
  Receive Date: 20120402
  Receipt Date: 20120327
  Transmission Date: 20120825
  Serious: Yes (Life-Threatening, Hospitalization, Other)
  Sender: FDA-Public Use
  Company Number: BR-PFIZER INC-2012078439

PATIENT
  Sex: Male

DRUGS (2)
  1. TEMSIROLIMUS [Suspect]
  2. SUTENT [Suspect]

REACTIONS (6)
  - PULMONARY FISTULA [None]
  - PLEURAL DISORDER [None]
  - OESOPHAGEAL PERFORATION [None]
  - FEELING ABNORMAL [None]
  - PNEUMONITIS [None]
  - MEDIASTINAL DISORDER [None]
